FAERS Safety Report 5940389-5 (Version None)
Quarter: 2008Q4

REPORT INFORMATION
  Report Type: 
  Country: None (occurrence: None)
  Receive Date: 20081104
  Receipt Date: 20081023
  Transmission Date: 20090506
  Serious: Yes (Hospitalization)
  Sender: FDA-Public Use
  Company Number: US-ROCHE-530701

PATIENT
  Sex: Male
  Weight: 48.5 kg

DRUGS (12)
  1. MYCOPHENOLATE MOFETIL [Suspect]
     Route: 048
     Dates: start: 20060805, end: 20071029
  2. MYCOPHENOLATE MOFETIL [Suspect]
     Route: 048
     Dates: start: 20071230
  3. TACROLIMUS [Suspect]
     Route: 048
     Dates: start: 20060805
  4. PREDNISONE TAB [Suspect]
     Route: 048
     Dates: start: 20060805, end: 20071001
  5. SOLU-MEDROL [Suspect]
     Route: 042
     Dates: start: 20060804
  6. FLOMAX [Concomitant]
  7. FOSAMAX [Concomitant]
  8. NEURONTIN [Concomitant]
  9. NEXIUM [Concomitant]
  10. SEREVENT [Concomitant]
     Dosage: REPORTED AS SEREVENT DISCUS.
  11. VALTREX [Concomitant]
  12. LORTAB [Concomitant]

REACTIONS (1)
  - OSTEONECROSIS [None]
